FAERS Safety Report 16752144 (Version 2)
Quarter: 2019Q3

REPORT INFORMATION
  Report Type: Not Available
  Country: US (occurrence: US)
  Receive Date: 20190828
  Receipt Date: 20190905
  Transmission Date: 20191005
  Serious: Yes (Death, Hospitalization)
  Sender: FDA-Public Use
  Company Number: US-NEUROCRINE BIOSCIENCES INC.-2019NBI02436

PATIENT
  Age: 70 Year
  Sex: Male

DRUGS (22)
  1. INGREZZA [Suspect]
     Active Substance: VALBENAZINE
     Indication: TARDIVE DYSKINESIA
     Route: 048
     Dates: start: 20170925, end: 20171002
  2. DULOXETINE. [Concomitant]
     Active Substance: DULOXETINE
  3. LISINOPRIL. [Concomitant]
     Active Substance: LISINOPRIL
  4. FLORASTOR [Concomitant]
     Active Substance: SACCHAROMYCES CEREVISIAE
  5. ZOFRAN [Concomitant]
     Active Substance: ONDANSETRON HYDROCHLORIDE
  6. SINEMET [Concomitant]
     Active Substance: CARBIDOPA\LEVODOPA
  7. CLONIDINE. [Concomitant]
     Active Substance: CLONIDINE
  8. BUSPIRONE [Concomitant]
     Active Substance: BUSPIRONE HYDROCHLORIDE
  9. POTASSIUM [Concomitant]
     Active Substance: POTASSIUM
  10. PROTONIX [Concomitant]
     Active Substance: PANTOPRAZOLE SODIUM
  11. VITAMIN D3 [Concomitant]
     Active Substance: CHOLECALCIFEROL
  12. AMITRIPTYLINE [Concomitant]
     Active Substance: AMITRIPTYLINE
  13. ELIQUIS [Concomitant]
     Active Substance: APIXABAN
  14. IRON [Concomitant]
     Active Substance: IRON
  15. TRIUMEQ [Concomitant]
     Active Substance: ABACAVIR SULFATE\DOLUTEGRAVIR SODIUM\LAMIVUDINE
  16. OXYCODONE [Concomitant]
     Active Substance: OXYCODONE
     Indication: PAIN
  17. DULOXETINE. [Concomitant]
     Active Substance: DULOXETINE
     Dosage: TOTAL DOSE 90 MG (30 MG AND 60 MG)
  18. ATORVASTATIN [Concomitant]
     Active Substance: ATORVASTATIN
  19. CETIRIZINE [Concomitant]
     Active Substance: CETIRIZINE HYDROCHLORIDE
  20. NUFOLA [Concomitant]
  21. INGREZZA [Suspect]
     Active Substance: VALBENAZINE
     Route: 048
     Dates: start: 20171003
  22. GABAPENTIN. [Concomitant]
     Active Substance: GABAPENTIN

REACTIONS (1)
  - Acute myocardial infarction [Fatal]

NARRATIVE: CASE EVENT DATE: 20190731
